FAERS Safety Report 7581954-1 (Version None)
Quarter: 2011Q2

REPORT INFORMATION
  Report Type: 
  Country: None (occurrence: None)
  Receive Date: 20110630
  Receipt Date: 20110621
  Transmission Date: 20111010
  Serious: Yes (Life-Threatening, Hospitalization)
  Sender: FDA-Public Use
  Company Number: GB-AMGEN-GBRSP2011032461

PATIENT
  Age: 60 Year
  Sex: Female
  Weight: 80 kg

DRUGS (11)
  1. PREDNISOLONE [Suspect]
     Dosage: UNKNOWN
     Route: 065
     Dates: start: 20080121
  2. ENBREL [Suspect]
     Indication: PRODUCT USED FOR UNKNOWN INDICATION
     Dosage: UNKNOWN
     Route: 058
     Dates: start: 20070101
  3. FUROSEMIDE [Concomitant]
     Dosage: UNK
     Route: 065
  4. GLICLAZIDE [Concomitant]
     Dosage: UNK
     Route: 065
  5. METHOTREXATE [Suspect]
     Dosage: 7.5 MG, WEEKLY
     Route: 065
     Dates: start: 20071201
  6. OMEPRAZOLE [Concomitant]
     Dosage: UNK
     Route: 065
  7. ASPIRIN ACTIV [Concomitant]
     Dosage: UNK
     Route: 065
  8. ROSUVASTATIN [Concomitant]
     Dosage: UNK
     Route: 065
  9. MELOXICAM [Concomitant]
     Dosage: UNK
     Route: 065
  10. ROSIGLITAZONE [Concomitant]
     Dosage: UNK
     Route: 065
  11. ATENOLOL [Concomitant]
     Dosage: UNK
     Route: 065

REACTIONS (3)
  - MULTI-ORGAN FAILURE [None]
  - BETA HAEMOLYTIC STREPTOCOCCAL INFECTION [None]
  - SEPSIS [None]
